FAERS Safety Report 5343416-1 (Version None)
Quarter: 2007Q2

REPORT INFORMATION
  Report Type: 
  Country: None (occurrence: None)
  Receive Date: 20070531
  Receipt Date: 20070517
  Transmission Date: 20071010
  Serious: Yes (Hospitalization)
  Sender: FDA-Public Use
  Company Number: 156582ISR

PATIENT
  Age: 74 Year
  Sex: Male

DRUGS (4)
  1. CARBAMAZEPINE [Suspect]
     Dosage: 600 MG
  2. CLOMIPRAMINE HYDROCHLORIDE [Concomitant]
  3. LIOTHYRONINE [Concomitant]
  4. LORAZEPAM [Concomitant]

REACTIONS (1)
  - MANIA [None]
